FAERS Safety Report 9016834 (Version 1)
Quarter: 2013Q1

REPORT INFORMATION
  Report Type: Spontaneous
  Country: US (occurrence: US)
  Receive Date: 20130117
  Receipt Date: 20130117
  Transmission Date: 20140127
  Serious: Yes (Other)
  Sender: FDA-Public Use
  Company Number: US-JNJFOC-20120807420

PATIENT
  Age: 73 None
  Sex: Female
  Weight: 58.97 kg

DRUGS (13)
  1. XARELTO [Suspect]
     Indication: CEREBROVASCULAR ACCIDENT PROPHYLAXIS
     Route: 048
     Dates: start: 201207
  2. XARELTO [Suspect]
     Indication: ATRIAL FIBRILLATION
     Route: 048
     Dates: start: 201207
  3. DILTIAZEM [Concomitant]
     Indication: CARDIAC DISORDER
     Route: 048
     Dates: start: 2010
  4. LISINOPRIL [Concomitant]
     Indication: CARDIAC DISORDER
     Route: 048
     Dates: start: 2010
  5. ASPIRIN [Concomitant]
     Indication: THROMBOSIS
     Route: 048
  6. POTASSIUM CHLORIDE [Concomitant]
     Indication: ELECTROLYTE SUBSTITUTION THERAPY
     Route: 048
     Dates: start: 2010
  7. SYNTHROID [Concomitant]
     Indication: THYROID DISORDER
     Route: 048
     Dates: start: 2000
  8. VITAMIN D [Concomitant]
     Indication: VITAMIN D DEFICIENCY
     Route: 048
     Dates: start: 2010
  9. VITAMIN B12 [Concomitant]
     Dates: start: 2011
  10. RYTHMOL [Concomitant]
     Indication: CARDIAC DISORDER
     Route: 048
     Dates: start: 20120718
  11. POTASSIUM CHLORIDE [Concomitant]
     Route: 048
  12. LEVOTHYROXINE [Concomitant]
  13. SPIRIVA [Concomitant]
     Route: 055

REACTIONS (7)
  - Contusion [Not Recovered/Not Resolved]
  - Palpitations [Unknown]
  - Tachycardia [Unknown]
  - Asthenia [Recovering/Resolving]
  - Abdominal discomfort [Recovering/Resolving]
  - Dizziness [Recovering/Resolving]
  - Constipation [Not Recovered/Not Resolved]
